FAERS Safety Report 7635451-5 (Version None)
Quarter: 2011Q3

REPORT INFORMATION
  Report Type: 
  Country: None (occurrence: None)
  Receive Date: 20110726
  Receipt Date: 20110726
  Transmission Date: 20111222
  Serious: No
  Sender: FDA-Public Use
  Company Number: None

PATIENT
  Sex: Male

DRUGS (1)
  1. LITHIUM CARBONATE [Suspect]
     Dosage: 600MG
     Route: 048
     Dates: start: 20091119, end: 20110704

REACTIONS (5)
  - TOXICITY TO VARIOUS AGENTS [None]
  - UNRESPONSIVE TO STIMULI [None]
  - LETHARGY [None]
  - BLOOD GLUCOSE DECREASED [None]
  - DEHYDRATION [None]
